FAERS Safety Report 19412591 (Version 2)
Quarter: 2022Q3

REPORT INFORMATION
  Report Type: Spontaneous
  Country: US (occurrence: US)
  Receive Date: 20210614
  Receipt Date: 20220806
  Transmission Date: 20221027
  Serious: Yes (Other)
  Sender: FDA-Public Use
  Company Number: US-MLMSERVICE-20210526-2908963-1

PATIENT
  Age: 60 Year
  Sex: Female
  Weight: 52 kg

DRUGS (3)
  1. CARBOPLATIN [Suspect]
     Active Substance: CARBOPLATIN
     Indication: Ovarian cancer stage III
     Dosage: CYCLE 1, TREATMENT DAY 1, (AREA UNDER THE CURVE (AUC) 4), ONCE PER CYCLE VIA PORT
  2. PACLITAXEL [Suspect]
     Active Substance: PACLITAXEL
     Indication: Ovarian cancer stage III
     Dosage: 150 MG/M3, CHEMO CYCLE 1, TREATMENT DAY 1, ONCE PER CYCLE VIA PORT
  3. PEGFILGRASTIM [Concomitant]
     Active Substance: PEGFILGRASTIM
     Indication: Chemotherapy side effect prophylaxis

REACTIONS (5)
  - Urinary retention [Unknown]
  - Hypertransaminasaemia [Recovered/Resolved]
  - Hyperbilirubinaemia [Recovered/Resolved]
  - Mycobacterium avium complex infection [Unknown]
  - Condition aggravated [Unknown]
